FAERS Safety Report 21183254 (Version 1)
Quarter: 2022Q3

REPORT INFORMATION
  Report Type: Spontaneous
  Country: JP (occurrence: JP)
  Receive Date: 20220808
  Receipt Date: 20220808
  Transmission Date: 20221026
  Serious: Yes (Life-Threatening, Other)
  Sender: FDA-Public Use
  Company Number: JP-MLMSERVICE-20220726-3692748-1

PATIENT
  Age: 49 Year
  Sex: Male

DRUGS (1)
  1. ALLOPURINOL [Suspect]
     Active Substance: ALLOPURINOL
     Indication: Product used for unknown indication

REACTIONS (5)
  - Drug reaction with eosinophilia and systemic symptoms [Unknown]
  - Lacunar stroke [Unknown]
  - Rhabdomyolysis [Unknown]
  - Multiple organ dysfunction syndrome [Unknown]
  - Human herpesvirus 6 infection [Unknown]
